FAERS Safety Report 5328258-5 (Version None)
Quarter: 2007Q2

REPORT INFORMATION
  Report Type: 
  Country: None (occurrence: None)
  Receive Date: 20070516
  Receipt Date: 20070516
  Transmission Date: 20071010
  Serious: No
  Sender: FDA-Public Use
  Company Number: None

PATIENT
  Age: 67 Year
  Sex: Female
  Weight: 114 kg

DRUGS (2)
  1. OPTIRAY 320 [Suspect]
     Indication: COLON CANCER
  2. OPTIRAY 320 [Suspect]
     Indication: COMPUTERISED TOMOGRAM

REACTIONS (2)
  - DEHYDRATION [None]
  - NEPHROPATHY TOXIC [None]
